FAERS Safety Report 14192909 (Version 1)
Quarter: 2017Q4

REPORT INFORMATION
  Report Type: Spontaneous
  Country: FR (occurrence: FR)
  Receive Date: 20171116
  Receipt Date: 20171116
  Transmission Date: 20180321
  Serious: Yes (Other)
  Sender: FDA-Public Use
  Company Number: FR-MERCK KGAA-2034201

PATIENT
  Age: 77 Year
  Sex: Female

DRUGS (1)
  1. NOVOTHYROX [Suspect]
     Active Substance: LEVOTHYROXINE SODIUM
     Indication: PRODUCT USED FOR UNKNOWN INDICATION
     Dates: start: 201705

REACTIONS (7)
  - Balance disorder [None]
  - Blood thyroid stimulating hormone increased [None]
  - Vertigo positional [None]
  - Arrhythmia [None]
  - Headache [None]
  - Anxiety [None]
  - Gait disturbance [None]

NARRATIVE: CASE EVENT DATE: 201705
